FAERS Safety Report 7733242-8 (Version None)
Quarter: 2011Q3

REPORT INFORMATION
  Report Type: 
  Country: None (occurrence: None)
  Receive Date: 20110907
  Receipt Date: 20110512
  Transmission Date: 20111222
  Serious: Yes (Other)
  Sender: FDA-Public Use
  Company Number: IE-BAYER-2011-017597

PATIENT
  Age: 33 Year
  Sex: Female
  Weight: 60 kg

DRUGS (2)
  1. MARVIOL [Concomitant]
  2. MIRENA [Suspect]
     Indication: UNEVALUABLE EVENT
     Dosage: 20 MCG/24HR, CONT
     Route: 015
     Dates: start: 20101209

REACTIONS (2)
  - MASTITIS [None]
  - BREAST ENLARGEMENT [None]
